FAERS Safety Report 5412343-3 (Version None)
Quarter: 2007Q3

REPORT INFORMATION
  Report Type: 
  Country: None (occurrence: None)
  Receive Date: 20070809
  Receipt Date: 20070806
  Transmission Date: 20080115
  Serious: Yes (Other)
  Sender: FDA-Public Use
  Company Number: SP01428

PATIENT
  Sex: Female

DRUGS (1)
  1. OSMOPREP [Suspect]
     Dosage: (SINGLE DOSE), ORAL
     Route: 048
     Dates: start: 20070804, end: 20070804

REACTIONS (2)
  - ANAPHYLACTIC REACTION [None]
  - BODY TEMPERATURE DECREASED [None]
